FAERS Safety Report 6118849-6 (Version None)
Quarter: 2009Q1

REPORT INFORMATION
  Report Type: 
  Country: None (occurrence: None)
  Receive Date: 20090316
  Receipt Date: 20090312
  Transmission Date: 20090719
  Serious: Yes (Death)
  Sender: FDA-Public Use
  Company Number: JP-JNJFOC-20080804104

PATIENT
  Age: 71 Year
  Sex: Male

DRUGS (2)
  1. FENTANYL [Suspect]
     Indication: CANCER PAIN
     Route: 062
  2. MORPHINE HYDROCHLORIDE [Concomitant]
     Indication: CANCER PAIN
     Route: 048

REACTIONS (2)
  - DROWNING [None]
  - LOSS OF CONSCIOUSNESS [None]
